FAERS Safety Report 5122550-5 (Version None)
Quarter: 2006Q4

REPORT INFORMATION
  Report Type: 
  Country: None (occurrence: None)
  Receive Date: 20061005
  Receipt Date: 20061005
  Transmission Date: 20070319
  Serious: Yes (Death)
  Sender: FDA-Public Use
  Company Number: None

PATIENT
  Age: 53 Year
  Sex: Female
  Weight: 56.6996 kg

DRUGS (1)
  1. METHADONE HCL [Suspect]
     Indication: FIBROMYALGIA
     Dosage: 40MG 4 TIMES A DAY PO
     Route: 048
     Dates: start: 20020730, end: 20020731

REACTIONS (1)
  - DRUG PRESCRIBING ERROR [None]
